FAERS Safety Report 24437577 (Version 1)
Quarter: 2024Q4

REPORT INFORMATION
  Report Type: Spontaneous
  Country: FR (occurrence: FR)
  Receive Date: 20241015
  Receipt Date: 20241015
  Transmission Date: 20250115
  Serious: Yes (Death, Hospitalization, Other)
  Sender: AZURITY PHARMACEUTICALS
  Company Number: FR-AZURITY PHARMACEUTICALS, INC.-AZR202409-000837

PATIENT
  Age: 62 Year
  Sex: Male

DRUGS (4)
  1. METHYLPREDNISOLONE ACETATE [Suspect]
     Active Substance: METHYLPREDNISOLONE ACETATE
     Indication: Dermatomyositis
     Dosage: 1MG/KG/D
     Route: 065
  2. METHYLPREDNISOLONE ACETATE [Suspect]
     Active Substance: METHYLPREDNISOLONE ACETATE
     Dosage: 1 GRAM
     Route: 065
  3. TOFACITINIB [Suspect]
     Active Substance: TOFACITINIB
     Indication: Dermatomyositis
     Dosage: 1MG/KG/D
     Route: 065
  4. TACROLIMUS [Suspect]
     Active Substance: TACROLIMUS
     Indication: Dermatomyositis
     Dosage: UNK
     Route: 065

REACTIONS (6)
  - Lung disorder [Fatal]
  - Bronchopleural fistula [Recovered/Resolved]
  - Pneumothorax [Recovered/Resolved]
  - Pulmonary cavitation [Recovered/Resolved]
  - Acute respiratory failure [Recovered/Resolved]
  - Bronchopulmonary aspergillosis [Unknown]
